FAERS Safety Report 9678548 (Version 1)
Quarter: 2013Q4

REPORT INFORMATION
  Report Type: Spontaneous
  Country: US (occurrence: US)
  Receive Date: 20131108
  Receipt Date: 20131108
  Transmission Date: 20140711
  Serious: No
  Sender: FDA-Public Use
  Company Number: US-TEVA-443070USA

PATIENT
  Age: 40 Year
  Sex: Female

DRUGS (2)
  1. PARAGARD 380A [Suspect]
     Indication: CONTRACEPTION
     Route: 015
     Dates: start: 20130614, end: 20131102
  2. LORATADINE [Concomitant]
     Indication: SEASONAL ALLERGY

REACTIONS (3)
  - Device expulsion [Recovered/Resolved]
  - Abdominal pain lower [Recovered/Resolved]
  - Abdominal pain [Recovered/Resolved]
